FAERS Safety Report 16870146 (Version 2)
Quarter: 2019Q4

REPORT INFORMATION
  Report Type: Spontaneous
  Country: US (occurrence: US)
  Receive Date: 20190930
  Receipt Date: 20191003
  Transmission Date: 20200122
  Serious: Yes (Other)
  Sender: FDA-Public Use
  Company Number: US-PFIZER INC-2019407690

PATIENT
  Age: 32 Year
  Sex: Female

DRUGS (2)
  1. METHOTREXATE SODIUM. [Suspect]
     Active Substance: METHOTREXATE SODIUM
     Indication: METASTASES TO MENINGES
     Dosage: UNK
     Route: 037
  2. FLUCONAZOLE. [Concomitant]
     Active Substance: FLUCONAZOLE
     Dosage: 800 MG, 1X/DAY

REACTIONS (7)
  - Condition aggravated [Unknown]
  - Visual field defect [Unknown]
  - Intracranial pressure increased [Unknown]
  - Photophobia [Unknown]
  - Musculoskeletal stiffness [Unknown]
  - Headache [Unknown]
  - Meningitis chemical [Unknown]
